FAERS Safety Report 5506486-3 (Version None)
Quarter: 2007Q4

REPORT INFORMATION
  Report Type: 
  Country: None (occurrence: None)
  Receive Date: 20071101
  Receipt Date: 20070925
  Transmission Date: 20080405
  Serious: Yes (Hospitalization)
  Sender: FDA-Public Use
  Company Number: A0684005B

PATIENT
  Sex: Male

DRUGS (1)
  1. ETHANOL DOUCHE (ALCOHOL) [Suspect]
     Dosage: SINGLE DOSE/ TRANSPLACENTA
     Route: 064
     Dates: start: 20070626, end: 20070626

REACTIONS (6)
  - CYANOSIS NEONATAL [None]
  - DRUG EXPOSURE DURING PREGNANCY [None]
  - LUNG DISORDER [None]
  - NEONATAL ASPIRATION [None]
  - NEONATAL DISORDER [None]
  - OXYGEN SATURATION DECREASED [None]
